FAERS Safety Report 7107660-5 (Version None)
Quarter: 2010Q4

REPORT INFORMATION
  Report Type: 
  Country: None (occurrence: None)
  Receive Date: 20101117
  Receipt Date: 20101104
  Transmission Date: 20110411
  Serious: Yes (Life-Threatening, Hospitalization, Other)
  Sender: FDA-Public Use
  Company Number: US-ELI_LILLY_AND_COMPANY-US200912005266

PATIENT
  Sex: Female

DRUGS (14)
  1. FORTEO [Suspect]
     Indication: OSTEOPOROSIS
     Dosage: 20 UG, DAILY (1/D)
     Route: 065
  2. FORTEO [Suspect]
     Dosage: 20 UG, DAILY (1/D)
     Route: 065
  3. PROGRAF [Concomitant]
  4. NEORAL [Concomitant]
  5. CYCLOSPORINE [Concomitant]
  6. PREDNISONE [Concomitant]
  7. CELLCEPT [Concomitant]
  8. RAPAMUNE [Concomitant]
  9. ACYCLOVIR SODIUM [Concomitant]
  10. VALCYTE [Concomitant]
  11. NYSTATIN [Concomitant]
     Dosage: 1 D/F, UNKNOWN
     Route: 048
  12. PENTAMIDINE ISETHIONATE [Concomitant]
  13. MULTI-VITAMIN [Concomitant]
  14. XANAX [Concomitant]

REACTIONS (6)
  - FEELING ABNORMAL [None]
  - HEPATIC FAILURE [None]
  - INJECTION SITE PAIN [None]
  - MALAISE [None]
  - OXYGEN SATURATION DECREASED [None]
  - PNEUMONIA [None]
